FAERS Safety Report 6220612-2 (Version None)
Quarter: 2009Q2

REPORT INFORMATION
  Report Type: 
  Country: None (occurrence: None)
  Receive Date: 20090610
  Receipt Date: 20090527
  Transmission Date: 20091009
  Serious: Yes (Hospitalization)
  Sender: FDA-Public Use
  Company Number: IT-ROCHE-634760

PATIENT

DRUGS (1)
  1. ROCEPHIN [Suspect]
     Indication: DRUG USE FOR UNKNOWN INDICATION
     Route: 030
     Dates: start: 20090309, end: 20090309

REACTIONS (3)
  - ANAPHYLACTIC REACTION [None]
  - ISCHAEMIC STROKE [None]
  - RESPIRATORY FAILURE [None]
